FAERS Safety Report 18425464 (Version 1)
Quarter: 2020Q4

REPORT INFORMATION
  Report Type: Spontaneous
  Country: DK (occurrence: DK)
  Receive Date: 20201026
  Receipt Date: 20201026
  Transmission Date: 20210114
  Serious: Yes (Death, Life-Threatening)
  Sender: FDA-Public Use
  Company Number: DK-SA-2020SA299209

PATIENT

DRUGS (4)
  1. PIPERACILLIN AND TAZOBACTAM [Concomitant]
     Active Substance: PIPERACILLIN SODIUM\TAZOBACTAM SODIUM
     Indication: PRODUCT USED FOR UNKNOWN INDICATION
     Dosage: UNK
     Dates: start: 20200922
  2. RIFADIN [Suspect]
     Active Substance: RIFAMPIN
     Indication: SEPSIS
     Dosage: STRENGTH: 600 MG
     Route: 042
     Dates: start: 20200922
  3. LINEZOLID. [Suspect]
     Active Substance: LINEZOLID
     Indication: SEPTIC EMBOLUS
     Dosage: STRENGTH: 2 MG/ML
     Route: 042
     Dates: start: 20200912
  4. METRONIDAZOLE. [Concomitant]
     Active Substance: METRONIDAZOLE
     Indication: PRODUCT USED FOR UNKNOWN INDICATION
     Dosage: STRENGTH: UNKNOWNDOSAGE: UNKNOWN

REACTIONS (1)
  - Blood lactic acid increased [Fatal]

NARRATIVE: CASE EVENT DATE: 20200922
